FAERS Safety Report 15488564 (Version 6)
Quarter: 2019Q2

REPORT INFORMATION
  Report Type: Spontaneous
  Country: BE (occurrence: BE)
  Receive Date: 20181011
  Receipt Date: 20190605
  Transmission Date: 20190711
  Serious: Yes (Other)
  Sender: FDA-Public Use
  Company Number: BE-PFIZER INC-2018404455

PATIENT
  Age: 71 Year
  Sex: Female

DRUGS (2)
  1. FLUCONAZOLE. [Suspect]
     Active Substance: FLUCONAZOLE
     Indication: ORAL CANDIDIASIS
     Dosage: 200 MG ONCE A DAY
  2. WARFARIN [Interacting]
     Active Substance: WARFARIN
     Indication: ATRIAL FIBRILLATION
     Dosage: 3.75 MG/DAY

REACTIONS (4)
  - Pharyngeal haematoma [Recovering/Resolving]
  - Drug interaction [Recovering/Resolving]
  - Pharyngeal stenosis [Recovering/Resolving]
  - International normalised ratio increased [Recovering/Resolving]
